FAERS Safety Report 8895819 (Version 1)
Quarter: 2012Q4

REPORT INFORMATION
  Report Type: Report from Study
  Country: DE (occurrence: DE)
  Receive Date: 20121108
  Receipt Date: 20121108
  Transmission Date: 20130627
  Serious: Yes (Hospitalization)
  Sender: FDA-Public Use
  Company Number: DE-ABBOTT-12P-062-1002675-00

PATIENT
  Sex: Male

DRUGS (1)
  1. HUMIRA [Suspect]
     Indication: CROHN^S DISEASE
     Dosage: Therapy-breakup
     Route: 058
     Dates: start: 20120426, end: 20120807

REACTIONS (2)
  - Intestinal stenosis [Recovering/Resolving]
  - Drug ineffective [Not Recovered/Not Resolved]
